FAERS Safety Report 10045229 (Version 2)
Quarter: 2014Q4

REPORT INFORMATION
  Report Type: Spontaneous
  Country: IT (occurrence: IT)
  Receive Date: 20140328
  Receipt Date: 20141026
  Transmission Date: 20150528
  Serious: Yes (Hospitalization, Other)
  Sender: FDA-Public Use
  Company Number: IT-BRISTOL-MYERS SQUIBB COMPANY-20551115

PATIENT
  Age: 88 Year
  Sex: Male

DRUGS (8)
  1. COUMADIN [Suspect]
     Active Substance: WARFARIN SODIUM
     Indication: ATRIAL FIBRILLATION
     Dosage: DOSE REDUCED ON UNK DATE
     Dates: start: 20120101
  2. CARDIOASPIRIN [Interacting]
     Active Substance: ASPIRIN
     Indication: CARDIAC DISORDER
     Dates: start: 20120101, end: 20140222
  3. PANTOPAN [Concomitant]
     Active Substance: PANTOPRAZOLE SODIUM
  4. DEPONIT [Concomitant]
     Active Substance: NITROGLYCERIN
     Route: 062
  5. PARACETAMOL [Concomitant]
     Active Substance: ACETAMINOPHEN
  6. CARDICOR [Concomitant]
     Active Substance: BISOPROLOL
     Indication: CARDIAC DISORDER
  7. LASITONE [Concomitant]
     Active Substance: FUROSEMIDE\SPIRONOLACTONE
     Indication: HYPERTENSION
     Dosage: 1DF: 1/UNIT
  8. TOTALIP [Concomitant]
     Active Substance: ATORVASTATIN
     Indication: DYSLIPIDAEMIA

REACTIONS (3)
  - Hypocoagulable state [Recovering/Resolving]
  - Thrombocytopenia [Recovering/Resolving]
  - Drug interaction [Unknown]

NARRATIVE: CASE EVENT DATE: 20140220
